FAERS Safety Report 13303862 (Version 5)
Quarter: 2017Q4

REPORT INFORMATION
  Report Type: Report from Study
  Country: GB (occurrence: GB)
  Receive Date: 20170307
  Receipt Date: 20171220
  Transmission Date: 20180320
  Serious: Yes (Hospitalization, Other)
  Sender: FDA-Public Use
  Company Number: GB-BIOGEN-2017BI00367119

PATIENT
  Sex: Female

DRUGS (1)
  1. TECFIDERA [Suspect]
     Active Substance: DIMETHYL FUMARATE
     Indication: RELAPSING-REMITTING MULTIPLE SCLEROSIS
     Dosage: MAINTENANCE DOSE
     Route: 048
     Dates: start: 20170222

REACTIONS (9)
  - Abdominal pain upper [Not Recovered/Not Resolved]
  - White blood cell count decreased [Not Recovered/Not Resolved]
  - Nausea [Not Recovered/Not Resolved]
  - Hypotension [Recovered/Resolved]
  - Weight decreased [Not Recovered/Not Resolved]
  - Syncope [Recovered/Resolved]
  - Neuralgia [Recovered/Resolved]
  - Musculoskeletal pain [Recovered/Resolved]
  - Hypoaesthesia [Not Recovered/Not Resolved]
